FAERS Safety Report 16117440 (Version 1)
Quarter: 2019Q1

REPORT INFORMATION
  Report Type: Report from Study
  Country: PL (occurrence: PL)
  Receive Date: 20190326
  Receipt Date: 20190326
  Transmission Date: 20190418
  Serious: Yes (Other)
  Sender: FDA-Public Use
  Company Number: PL-ROCHE-2289972

PATIENT

DRUGS (2)
  1. TOCILIZUMAB. [Suspect]
     Active Substance: TOCILIZUMAB
     Indication: RHEUMATOID ARTHRITIS
     Route: 042
  2. METHOTREXATE. [Concomitant]
     Active Substance: METHOTREXATE

REACTIONS (12)
  - Blood cholesterol increased [Unknown]
  - Gastrointestinal infection [Unknown]
  - Neutropenia [Unknown]
  - Diverticulum [Unknown]
  - Leukopenia [Unknown]
  - Infection [Unknown]
  - Upper respiratory tract infection [Unknown]
  - Urinary tract infection [Unknown]
  - Low density lipoprotein increased [Unknown]
  - Colon cancer [Unknown]
  - Oral herpes [Unknown]
  - Transaminases increased [Unknown]
